FAERS Safety Report 15258628 (Version 1)
Quarter: 2018Q3

REPORT INFORMATION
  Report Type: Spontaneous
  Country: US (occurrence: US)
  Receive Date: 20180809
  Receipt Date: 20180809
  Transmission Date: 20181010
  Serious: No
  Sender: FDA-Public Use
  Company Number: US-TEVA-2018-US-938869

PATIENT
  Sex: Male

DRUGS (1)
  1. PREDNISONE. [Suspect]
     Active Substance: PREDNISONE
     Dosage: TOOK 2 TABLETS ON THE MORNING OF WEDNESDAY (01?AUG?2018)
     Dates: start: 20180801

REACTIONS (4)
  - Back pain [Unknown]
  - Gluten sensitivity [Unknown]
  - Intentional dose omission [Unknown]
  - Headache [Unknown]

NARRATIVE: CASE EVENT DATE: 20180801
